FAERS Safety Report 6837600-5 (Version None)
Quarter: 2010Q3

REPORT INFORMATION
  Report Type: 
  Country: None (occurrence: None)
  Receive Date: 20100713
  Receipt Date: 20070516
  Transmission Date: 20110219
  Serious: No
  Sender: FDA-Public Use
  Company Number: US-PFIZER INC-2007039887

PATIENT

DRUGS (1)
  1. CHANTIX [Suspect]

REACTIONS (4)
  - DIZZINESS [None]
  - EUPHORIC MOOD [None]
  - INSOMNIA [None]
  - VISION BLURRED [None]
